FAERS Safety Report 15733630 (Version 2)
Quarter: 2019Q1

REPORT INFORMATION
  Report Type: Spontaneous
  Country: CN (occurrence: CN)
  Receive Date: 20181218
  Receipt Date: 20190104
  Transmission Date: 20190417
  Serious: Yes (Death, Other)
  Sender: FDA-Public Use
  Company Number: CN-ROCHE-2228348

PATIENT
  Age: 29 Year
  Sex: Female

DRUGS (3)
  1. TEICOPLANIN [Concomitant]
     Active Substance: TEICOPLANIN
     Route: 065
  2. OSELTAMIVIR [Suspect]
     Active Substance: OSELTAMIVIR
     Indication: AVIAN INFLUENZA
     Route: 065
  3. MEROPENEM. [Concomitant]
     Active Substance: MEROPENEM
     Route: 065

REACTIONS (8)
  - Myocarditis [Unknown]
  - Pulmonary oedema [Unknown]
  - Cardiac arrest [Fatal]
  - Cardiac failure [Unknown]
  - Maternal exposure during pregnancy [Unknown]
  - Pulmonary embolism [Fatal]
  - Atrial fibrillation [Unknown]
  - Foetal death [Unknown]
